FAERS Safety Report 19281740 (Version 3)
Quarter: 2023Q4

REPORT INFORMATION
  Report Type: Other
  Country: US (occurrence: None)
  Receive Date: 20210521
  Receipt Date: 20231003
  Transmission Date: 20240110
  Serious: No
  Sender: FDA-Public Use
  Company Number: US-ROCHE-2829274

PATIENT
  Age: 69 Year
  Sex: Male
  Weight: 47.67 kg

DRUGS (5)
  1. XELODA [Suspect]
     Active Substance: CAPECITABINE
     Indication: Bile duct adenocarcinoma
     Dosage: MONDAY TO FRIDAY DURING RADIATION TREATMENT FOR 6 WEEKS?DATE OF TREATMENT 02/NOV/2020
     Route: 048
  2. XELODA [Suspect]
     Active Substance: CAPECITABINE
     Indication: Hepatobiliary cancer
  3. ATORVASTATIN CALCIUM [Concomitant]
     Active Substance: ATORVASTATIN CALCIUM
     Indication: Blood pressure measurement
     Route: 048
  4. FAMOTIDINE [Concomitant]
     Active Substance: FAMOTIDINE
     Route: 048
  5. CARVEDILOL [Concomitant]
     Active Substance: CARVEDILOL

REACTIONS (2)
  - Off label use [Unknown]
  - No adverse event [Unknown]
